FAERS Safety Report 4288378-3 (Version None)
Quarter: 2004Q1

REPORT INFORMATION
  Report Type: 
  Country: None (occurrence: None)
  Receive Date: 20040209
  Receipt Date: 20030923
  Transmission Date: 20041129
  Serious: No
  Sender: FDA-Public Use
  Company Number: US-GLAXOSMITHKLINE-A0427068A

PATIENT
  Age: 80 Year
  Sex: Female

DRUGS (13)
  1. PAXIL [Suspect]
     Indication: DEPRESSION
     Dosage: 20MG PER DAY
     Route: 048
     Dates: start: 20030904
  2. ASPIRIN [Concomitant]
  3. DIGOXIN [Concomitant]
  4. PROPRANOLOL [Concomitant]
  5. DITROPAN [Concomitant]
  6. FUROSEMIDE [Concomitant]
  7. POTASSIUM [Concomitant]
  8. GLYBURIDE [Concomitant]
  9. STOOL SOFTENER [Concomitant]
  10. XANAX [Concomitant]
  11. RESTORIL [Concomitant]
  12. LOVASTATIN [Concomitant]
  13. MACROBID [Concomitant]

REACTIONS (4)
  - ANOREXIA [None]
  - INSOMNIA [None]
  - NAUSEA [None]
  - SOMNOLENCE [None]
